FAERS Safety Report 13315957 (Version 2)
Quarter: 2017Q2

REPORT INFORMATION
  Report Type: Report from Study
  Country: BE (occurrence: BE)
  Receive Date: 20170310
  Receipt Date: 20170526
  Transmission Date: 20170830
  Serious: Yes (Hospitalization)
  Sender: FDA-Public Use
  Company Number: BE-ROCHE-1902785

PATIENT
  Age: 50 Year
  Sex: Female
  Weight: 56.1 kg

DRUGS (5)
  1. CAPECITABINE. [Suspect]
     Active Substance: CAPECITABINE
     Indication: HER-2 POSITIVE GASTRIC CANCER
     Dosage: D1-14 IN 3 WEEKLY SCHEDULE?DATE OF RECENT DOSE PRIOR TO THE EVENT: 27/FEB/2017
     Route: 048
     Dates: start: 20170227
  2. CISPLATIN. [Suspect]
     Active Substance: CISPLATIN
     Indication: HER-2 POSITIVE GASTRIC CANCER
     Dosage: D1 IN 3 WEEKLY SCHEDULE?DATE OF RECENT DOSE PRIOR TO THE EVENT: 27/FEB/2017
     Route: 042
     Dates: start: 20170227
  3. PERTUZUMAB [Suspect]
     Active Substance: PERTUZUMAB
     Indication: HER-2 POSITIVE GASTRIC CANCER
     Dosage: D1 IN 3 WEEKLY SCHEDULE?LOADING DOSE?DATE OF RECENT DOSE PRIOR TO THE EVENT: 27/FEB/2017
     Route: 042
     Dates: start: 20170227
  4. TRASTUZUMAB [Suspect]
     Active Substance: TRASTUZUMAB
     Indication: HER-2 POSITIVE GASTRIC CANCER
     Dosage: D1 IN 3 WEEKLY SCHEDULE?DATE OF RECENT DOSE PRIOR TO THE EVENT: 27/FEB/2017
     Route: 042
     Dates: start: 20170227
  5. DEXAMETHASONE. [Concomitant]
     Active Substance: DEXAMETHASONE
     Indication: NAUSEA
     Dosage: FIRST 2 DAYS AFTER THERAPY
     Route: 048
     Dates: start: 20170228

REACTIONS (1)
  - Dysphagia [Recovered/Resolved]

NARRATIVE: CASE EVENT DATE: 20170302
